FAERS Safety Report 6014519-3 (Version None)
Quarter: 2008Q4

REPORT INFORMATION
  Report Type: 
  Country: None (occurrence: None)
  Receive Date: 20081219
  Receipt Date: 20080722
  Transmission Date: 20090506
  Serious: No
  Sender: FDA-Public Use
  Company Number: A0739933A

PATIENT
  Sex: Male

DRUGS (2)
  1. AVODART [Suspect]
     Indication: PROSTATIC DISORDER
     Route: 048
  2. FLOMAX [Suspect]
     Indication: URINARY RETENTION
     Route: 065

REACTIONS (2)
  - FREE PROSTATE-SPECIFIC ANTIGEN DECREASED [None]
  - MICTURITION DISORDER [None]
